FAERS Safety Report 8795214 (Version 3)
Quarter: 2015Q1

REPORT INFORMATION
  Report Type: Report from Study
  Country: US (occurrence: US)
  Receive Date: 20120918
  Receipt Date: 20150316
  Transmission Date: 20150721
  Serious: Yes (Death)
  Sender: FDA-Public Use
  Company Number: US-ROCHE-1124715

PATIENT
  Sex: Female

DRUGS (9)
  1. DECADRON [Concomitant]
     Active Substance: DEXAMETHASONE
     Route: 042
  2. AVASTIN [Suspect]
     Active Substance: BEVACIZUMAB
     Indication: UTERINE CANCER
     Route: 042
  3. HEPARIN [Concomitant]
     Active Substance: HEPARIN SODIUM
     Dosage: 500 UNIT
     Route: 065
  4. TAXOL [Concomitant]
     Active Substance: PACLITAXEL
     Route: 042
  5. ALOXI [Concomitant]
     Active Substance: PALONOSETRON HYDROCHLORIDE
     Route: 042
  6. CLONIDINE. [Concomitant]
     Active Substance: CLONIDINE
     Indication: HYPERTENSION
     Route: 048
  7. ZANTAC [Concomitant]
     Active Substance: RANITIDINE HYDROCHLORIDE
     Route: 042
  8. BENADRYL [Concomitant]
     Active Substance: DIPHENHYDRAMINE HYDROCHLORIDE
     Route: 042
  9. ATIVAN [Concomitant]
     Active Substance: LORAZEPAM
     Indication: HYPERTENSION
     Route: 042

REACTIONS (7)
  - Pain [Unknown]
  - Off label use [Unknown]
  - Vomiting [Unknown]
  - Death [Fatal]
  - Nausea [Unknown]
  - Cushingoid [Unknown]
  - Fatigue [Unknown]
